FAERS Safety Report 6386714-5 (Version None)
Quarter: 2009Q4

REPORT INFORMATION
  Report Type: 
  Country: None (occurrence: None)
  Receive Date: 20091002
  Receipt Date: 20091001
  Transmission Date: 20100525
  Serious: Yes (Hospitalization)
  Sender: FDA-Public Use
  Company Number: FR-WYE-G04550109

PATIENT
  Age: 13 Year
  Sex: Male

DRUGS (2)
  1. ADVIL [Suspect]
     Indication: PYREXIA
     Dosage: UNKNOWN
     Route: 048
     Dates: start: 20060101, end: 20060101
  2. ADVIL [Suspect]
     Indication: PAIN

REACTIONS (1)
  - RENAL FAILURE ACUTE [None]
